FAERS Safety Report 5855722-2 (Version None)
Quarter: 2008Q3

REPORT INFORMATION
  Report Type: 
  Country: None (occurrence: None)
  Receive Date: 20080821
  Receipt Date: 20080821
  Transmission Date: 20090109
  Serious: No
  Sender: FDA-Public Use
  Company Number: None

PATIENT
  Age: 35 Year
  Sex: Female

DRUGS (6)
  1. ENBREL [Suspect]
     Dates: start: 20050801, end: 20051206
  2. ^CHINESE HERBAL SUPPLEMENT^ [Concomitant]
  3. M.V.I. [Concomitant]
  4. CALCIUM AND ACIDOPHILUS [Concomitant]
  5. ACETAMINOPHEN [Concomitant]
  6. EXCEDRIN (MIGRAINE) [Concomitant]

REACTIONS (7)
  - ANTINUCLEAR ANTIBODY POSITIVE [None]
  - CHOLELITHIASIS [None]
  - COAGULOPATHY [None]
  - CONFUSIONAL STATE [None]
  - GALLBLADDER DISORDER [None]
  - HEPATITIS [None]
  - LIVER INJURY [None]
